FAERS Safety Report 8936492 (Version 2)
Quarter: 2012Q4

REPORT INFORMATION
  Report Type: 
  Country: JP (occurrence: JP)
  Receive Date: 20121130
  Receipt Date: 20121206
  Transmission Date: 20130627
  Serious: Yes (Other)
  Sender: FDA-Public Use
  Company Number: JP-PFIZER INC-2012249237

PATIENT
  Age: 25 Year
  Sex: Female

DRUGS (3)
  1. ZITHROMAC [Suspect]
     Dosage: 500 mg, UNK
     Route: 048
     Dates: start: 20121001, end: 20121002
  2. PL [Concomitant]
     Dosage: UNK
     Route: 048
  3. CLEANAL [Concomitant]
     Dosage: UNK
     Route: 048

REACTIONS (1)
  - Bronchopneumonia [Recovered/Resolved]
